FAERS Safety Report 13287706 (Version 1)
Quarter: 2017Q1

REPORT INFORMATION
  Report Type: Spontaneous
  Country: GB (occurrence: GB)
  Receive Date: 20170302
  Receipt Date: 20170302
  Transmission Date: 20170428
  Serious: Yes (Other)
  Sender: FDA-Public Use
  Company Number: GB-MYLANLABS-2017M1012821

PATIENT

DRUGS (5)
  1. GINKGO BILOBA [Concomitant]
     Active Substance: GINKGO
     Dosage: UNK
     Route: 065
  2. OMEPRAZOLE. [Suspect]
     Active Substance: OMEPRAZOLE
     Dosage: 10 MG, QD
     Route: 065
  3. DIFFUNDOX XL [Suspect]
     Active Substance: TAMSULOSIN HYDROCHLORIDE
     Indication: PAIN
     Dosage: UNK
     Route: 065
     Dates: start: 20150909
  4. DIFFUNDOX XL [Suspect]
     Active Substance: TAMSULOSIN HYDROCHLORIDE
     Dosage: UNK
     Route: 065
     Dates: start: 20151005
  5. GLUCOSAMINE [Concomitant]
     Active Substance: GLUCOSAMINE
     Dosage: UNK
     Route: 065

REACTIONS (5)
  - Eosinophilia [Unknown]
  - Vision blurred [Unknown]
  - Macular hole [Unknown]
  - Macular degeneration [Unknown]
  - Macular detachment [Unknown]

NARRATIVE: CASE EVENT DATE: 20151014
